FAERS Safety Report 9358181 (Version 1)
Quarter: 2013Q2

REPORT INFORMATION
  Report Type: Spontaneous
  Country: US (occurrence: US)
  Receive Date: 20130620
  Receipt Date: 20130620
  Transmission Date: 20140414
  Serious: No
  Sender: FDA-Public Use
  Company Number: US-US-EMD SERONO, INC.-7039550

PATIENT
  Sex: Male

DRUGS (4)
  1. REBIF [Suspect]
     Indication: MULTIPLE SCLEROSIS
     Route: 058
     Dates: start: 20100617
  2. ADDERALL [Concomitant]
  3. TIZANADINE [Concomitant]
  4. IBUPROFEN [Concomitant]

REACTIONS (5)
  - Haematuria [Not Recovered/Not Resolved]
  - Prostatitis [Unknown]
  - Blood urea abnormal [Unknown]
  - Memory impairment [Unknown]
  - Alanine aminotransferase increased [Unknown]
